FAERS Safety Report 5293291-9 (Version None)
Quarter: 2007Q2

REPORT INFORMATION
  Report Type: 
  Country: None (occurrence: None)
  Receive Date: 20070411
  Receipt Date: 20070327
  Transmission Date: 20071010
  Serious: Yes (Other)
  Sender: FDA-Public Use
  Company Number: US-JNJFOC-20070306327

PATIENT
  Sex: Female
  Weight: 71.67 kg

DRUGS (3)
  1. REMICADE [Suspect]
     Indication: CROHN'S DISEASE
     Route: 042
  2. IMURAN [Concomitant]
     Indication: CROHN'S DISEASE
  3. CIPRO [Concomitant]
     Indication: CROHN'S DISEASE

REACTIONS (7)
  - ABSCESS [None]
  - DRUG INEFFECTIVE [None]
  - FATIGUE [None]
  - INFECTION [None]
  - INFUSION RELATED REACTION [None]
  - RASH [None]
  - SURGERY [None]
